FAERS Safety Report 18898861 (Version 1)
Quarter: 2021Q1

REPORT INFORMATION
  Report Type: Spontaneous
  Country: DE (occurrence: DE)
  Receive Date: 20210216
  Receipt Date: 20210216
  Transmission Date: 20210420
  Serious: Yes (Hospitalization, Other)
  Sender: FDA-Public Use
  Company Number: DE-MYLANLABS-2021M1009034

PATIENT
  Sex: Female
  Weight: 50 kg

DRUGS (8)
  1. HEPATITIS B VACCINE RECOMBINANT [Suspect]
     Active Substance: HEPATITIS B VIRUS HBSAG SURFACE PROTEIN ANTIGEN
     Indication: PRODUCT USED FOR UNKNOWN INDICATION
     Dosage: UNK
  2. L?THYROXIN                         /00068002/ [Concomitant]
     Active Substance: LEVOTHYROXINE SODIUM
     Indication: HYPOTHYROIDISM
     Dosage: 75 MICROGRAM
  3. PARACETAMOL [Suspect]
     Active Substance: ACETAMINOPHEN
     Indication: PRODUCT USED FOR UNKNOWN INDICATION
     Dosage: 500 MILLIGRAM, TOTAL
     Route: 048
     Dates: start: 201806
  4. GARDASIL [Suspect]
     Active Substance: HUMAN PAPILLOMAVIRUS QUADRIVALENT (TYPES 6, 11, 16, AND 18) VACCINE, RECOMBINANT
     Dosage: UNK
     Dates: start: 2007
  5. SWINGO [Concomitant]
     Active Substance: ETHINYL ESTRADIOL\LEVONORGESTREL
     Dosage: UNK
  6. GARDASIL [Suspect]
     Active Substance: HUMAN PAPILLOMAVIRUS QUADRIVALENT (TYPES 6, 11, 16, AND 18) VACCINE, RECOMBINANT
     Indication: PROPHYLAXIS
     Dosage: UNK
     Dates: start: 2007
  7. GARDASIL [Suspect]
     Active Substance: HUMAN PAPILLOMAVIRUS QUADRIVALENT (TYPES 6, 11, 16, AND 18) VACCINE, RECOMBINANT
     Dosage: UNK
     Dates: start: 2007
  8. HEPATITIS A VACCINE NOS [Suspect]
     Active Substance: HEPATITIS A VACCINE, INACTIVATED
     Indication: PRODUCT USED FOR UNKNOWN INDICATION
     Dosage: UNK

REACTIONS (23)
  - Bacterial disease carrier [Unknown]
  - Hepatic failure [Recovered/Resolved]
  - Coagulopathy [Unknown]
  - Abdominal pain lower [Unknown]
  - Abdominal pain [Unknown]
  - Abdominal pain upper [Unknown]
  - Diarrhoea [Unknown]
  - Human papilloma virus test positive [Unknown]
  - Hepatomegaly [Recovered/Resolved]
  - Large intestine polyp [Recovered/Resolved]
  - Chronic gastritis [Unknown]
  - Fatigue [Unknown]
  - Nephritis [Unknown]
  - Splenomegaly [Unknown]
  - Weight decreased [Unknown]
  - Hyperthyroidism [Unknown]
  - Iron deficiency anaemia [Unknown]
  - Monocytosis [Unknown]
  - Coagulation time shortened [Unknown]
  - Food intolerance [Recovering/Resolving]
  - Hepatic necrosis [Unknown]
  - Oesophageal papilloma [Unknown]
  - Fibroadenoma of breast [Recovered/Resolved]

NARRATIVE: CASE EVENT DATE: 2018
